FAERS Safety Report 12786676 (Version 1)
Quarter: 2016Q3

REPORT INFORMATION
  Report Type: Spontaneous
  Country: AR (occurrence: AR)
  Receive Date: 20160927
  Receipt Date: 20160927
  Transmission Date: 20161109
  Serious: Yes (Other)
  Sender: FDA-Public Use
  Company Number: AR-ELI_LILLY_AND_COMPANY-AR201609002745

PATIENT
  Age: 60 Year
  Sex: Male

DRUGS (3)
  1. HUMALOG [Suspect]
     Active Substance: INSULIN LISPRO
     Indication: DIABETES MELLITUS
     Dosage: 12-16 IU, TID
     Route: 058
     Dates: start: 2011
  2. TRESIBA [Concomitant]
     Active Substance: INSULIN DEGLUDEC
  3. HUMALOG [Suspect]
     Active Substance: INSULIN LISPRO
     Dosage: 12-16 IU, TID
     Route: 058
     Dates: start: 2011

REACTIONS (3)
  - Accidental underdose [Not Recovered/Not Resolved]
  - Glycosylated haemoglobin increased [Unknown]
  - Coronary artery occlusion [Recovering/Resolving]

NARRATIVE: CASE EVENT DATE: 201509
